FAERS Safety Report 10061763 (Version 1)
Quarter: 2014Q2

REPORT INFORMATION
  Report Type: Spontaneous
  Country: IR (occurrence: None)
  Receive Date: 20140403
  Receipt Date: 20140403
  Transmission Date: 20141212
  Serious: Yes (Hospitalization, Other)
  Sender: FDA-Public Use
  Company Number: 2014P1002761

PATIENT
  Age: 41 Year
  Sex: Male

DRUGS (4)
  1. OPIUM [Suspect]
     Route: 055
  2. NALTREXONE [Suspect]
     Indication: TOXICITY TO VARIOUS AGENTS
  3. BENZODIAZEPINE [Suspect]
  4. TRAMADOL [Suspect]
     Dates: start: 2004

REACTIONS (13)
  - Serotonin syndrome [None]
  - Toxicity to various agents [None]
  - Loss of consciousness [None]
  - Convulsion [None]
  - Ecchymosis [None]
  - Rhabdomyolysis [None]
  - Agitation [None]
  - Mydriasis [None]
  - Hyperhidrosis [None]
  - Sinus tachycardia [None]
  - pH urine increased [None]
  - Bacterial test positive [None]
  - Red blood cells urine positive [None]
